FAERS Safety Report 23789953 (Version 1)
Quarter: 2024Q2

REPORT INFORMATION
  Report Type: Spontaneous
  Country: FR (occurrence: FR)
  Receive Date: 20240426
  Receipt Date: 20240426
  Transmission Date: 20240717
  Serious: Yes (Hospitalization)
  Sender: FDA-Public Use
  Company Number: None

PATIENT
  Age: 48 Year
  Sex: Male
  Weight: 81 kg

DRUGS (1)
  1. CLOBAZAM [Suspect]
     Active Substance: CLOBAZAM
     Indication: Product used for unknown indication
     Dosage: 100 MG, 1X
     Route: 048
     Dates: start: 20240103, end: 20240103

REACTIONS (4)
  - Disturbance in attention [Recovered/Resolved]
  - Incorrect dose administered [Unknown]
  - Accidental overdose [Unknown]
  - Product administration error [Unknown]

NARRATIVE: CASE EVENT DATE: 20240103
